FAERS Safety Report 16324765 (Version 1)
Quarter: 2019Q2

REPORT INFORMATION
  Report Type: Spontaneous
  Country: US (occurrence: US)
  Receive Date: 20190516
  Receipt Date: 20190516
  Transmission Date: 20190711
  Serious: Yes (Other)
  Sender: FDA-Public Use
  Company Number: None

PATIENT
  Age: 39 Year
  Sex: Female
  Weight: 112.5 kg

DRUGS (15)
  1. ALBUTEROL SULFATE HFA INHALATION AEROSOL, COMMON NAME PROAIR HFA [Suspect]
     Active Substance: ALBUTEROL SULFATE
     Indication: ASTHMA
     Dosage: ?          QUANTITY:1 INHALATION(S);OTHER FREQUENCY:1 PUFF EVERY 4-6 H;?
     Route: 055
     Dates: start: 20190515, end: 20190515
  2. HYDROXINE [Concomitant]
     Active Substance: HYDROXYZINE HYDROCHLORIDE
  3. VITAMIN HYDROXYL B12 [Concomitant]
  4. GABA WITH B6 [Concomitant]
  5. VITAMIN D [Concomitant]
     Active Substance: VITAMIN D NOS
  6. ACIDOPHILUS + BIFUDUS [Concomitant]
  7. JARROW ADRENAL OPTIMIZER [Concomitant]
  8. BURDOCK ROOT [Concomitant]
  9. NAC [Concomitant]
     Active Substance: ACETYLCYSTEINE
  10. FLOVENT [Concomitant]
     Active Substance: FLUTICASONE PROPIONATE
  11. PREDNISONE. [Concomitant]
     Active Substance: PREDNISONE
  12. DANDELION ROOT [Concomitant]
  13. PRENATAL MULTIVITAMIN [Concomitant]
  14. MAITAKE MUSHROOM [Concomitant]
     Active Substance: MAITAKE
  15. VITAMIN C [Concomitant]
     Active Substance: ASCORBIC ACID

REACTIONS (4)
  - Pharyngeal swelling [None]
  - Dyspnoea [None]
  - Insomnia [None]
  - Urticaria [None]

NARRATIVE: CASE EVENT DATE: 20190515
